FAERS Safety Report 5720710-3 (Version None)
Quarter: 2008Q2

REPORT INFORMATION
  Report Type: 
  Country: None (occurrence: None)
  Receive Date: 20080429
  Receipt Date: 20080415
  Transmission Date: 20081010
  Serious: Yes (Hospitalization)
  Sender: FDA-Public Use
  Company Number: FR-JNJFOC-20080305550

PATIENT
  Sex: Male

DRUGS (3)
  1. ULTRACET [Suspect]
     Indication: PATELLA FRACTURE
     Route: 048
     Dates: start: 20080130, end: 20080131
  2. ULTRACET [Suspect]
     Indication: PAIN
     Dosage: PRESCRIBED; 1-2 TABLETS, 1-4 TIMES DAILY
     Route: 048
     Dates: start: 20080130, end: 20080131
  3. LOVENOX [Concomitant]
     Route: 065

REACTIONS (11)
  - CONFUSIONAL STATE [None]
  - DELIRIUM [None]
  - HALLUCINATION [None]
  - HEADACHE [None]
  - INCOHERENT [None]
  - LOSS OF CONSCIOUSNESS [None]
  - MALAISE [None]
  - MEMORY IMPAIRMENT [None]
  - NAUSEA [None]
  - NECK PAIN [None]
  - ORAL DYSAESTHESIA [None]
